FAERS Safety Report 10530805 (Version 2)
Quarter: 2014Q4

REPORT INFORMATION
  Report Type: Spontaneous
  Country: ES (occurrence: ES)
  Receive Date: 20141021
  Receipt Date: 20141027
  Transmission Date: 20150528
  Serious: Yes (Death, Other)
  Sender: FDA-Public Use
  Company Number: PHHY2014ES134563

PATIENT
  Age: 62 Year
  Sex: Female

DRUGS (12)
  1. LEUCOVORIN [Concomitant]
     Active Substance: LEUCOVORIN
     Indication: METASTASES TO LIVER
  2. BEVACIZUMAB [Concomitant]
     Active Substance: BEVACIZUMAB
     Indication: ADENOCARCINOMA OF COLON
     Dosage: 5 MG/KG, UNK
     Route: 065
  3. BEVACIZUMAB [Concomitant]
     Active Substance: BEVACIZUMAB
     Indication: METASTASES TO LIVER
  4. ACYCLOVIR. [Concomitant]
     Active Substance: ACYCLOVIR
     Indication: HERPES ZOSTER
     Route: 065
  5. 5-FLUOROURACIL [Interacting]
     Active Substance: FLUOROURACIL
     Indication: METASTASES TO LIVER
     Dosage: 1200 MG/M2, 48 HOUR CONTINUOUS INFUSION
     Route: 040
  6. NERVINEX [Interacting]
     Active Substance: BRIVUDINE
     Indication: HERPES ZOSTER
     Dosage: 125 MG, QD
     Route: 065
  7. OXALIPLATIN. [Concomitant]
     Active Substance: OXALIPLATIN
     Indication: ADENOCARCINOMA OF COLON
     Dosage: 85 MG/M2 ON DAY 1
     Route: 042
  8. OXALIPLATIN. [Concomitant]
     Active Substance: OXALIPLATIN
     Indication: METASTASES TO LIVER
  9. FAMCICLOVIR. [Concomitant]
     Active Substance: FAMCICLOVIR
     Indication: HERPES ZOSTER
     Route: 065
  10. 5-FLUOROURACIL [Suspect]
     Active Substance: FLUOROURACIL
     Indication: ADENOCARCINOMA OF COLON
     Dosage: 400 MG/M2, DAY 1
     Route: 040
  11. FLUCONAZOLE. [Concomitant]
     Active Substance: FLUCONAZOLE
     Indication: HERPES ZOSTER
     Dosage: UNK
     Route: 065
  12. LEUCOVORIN [Concomitant]
     Active Substance: LEUCOVORIN
     Indication: ADENOCARCINOMA OF COLON
     Dosage: 200 MG/M2, ON DAY 1
     Route: 042

REACTIONS (16)
  - Faeces discoloured [Unknown]
  - Toxicity to various agents [Unknown]
  - Pigmentation disorder [Unknown]
  - Pulmonary sepsis [Fatal]
  - Abdominal pain [Not Recovered/Not Resolved]
  - Oral disorder [Unknown]
  - Skin ulcer [Unknown]
  - Alopecia [Unknown]
  - Oral pain [Not Recovered/Not Resolved]
  - Acute respiratory failure [Fatal]
  - Pain [Unknown]
  - Thrombocytopenia [Recovering/Resolving]
  - Drug interaction [Fatal]
  - Dysphagia [Unknown]
  - Neutropenia [Recovering/Resolving]
  - Leukopenia [Recovering/Resolving]
